FAERS Safety Report 23501693 (Version 2)
Quarter: 2024Q1

REPORT INFORMATION
  Report Type: Spontaneous
  Country: IT (occurrence: IT)
  Receive Date: 20240208
  Receipt Date: 20240216
  Transmission Date: 20240409
  Serious: Yes (Hospitalization, Other)
  Sender: FDA-Public Use
  Company Number: IT-009507513-2401ITA014293

PATIENT
  Age: 78 Year
  Sex: Female

DRUGS (3)
  1. PACLITAXEL [Suspect]
     Active Substance: PACLITAXEL
     Indication: Triple negative breast cancer
     Dosage: UNK UNK, QW
     Route: 042
     Dates: start: 20231009, end: 20231207
  2. PEMBROLIZUMAB [Suspect]
     Active Substance: PEMBROLIZUMAB
     Indication: Triple negative breast cancer
     Dosage: 200 MILLIGRAM, Q3W?ROUTE OF ADMIN.- INTRAVENOUS (NOT OTHERWISE SPECIFIED)?FORM OF ADMIN.- SOLUTION F
     Dates: start: 20231009, end: 20231123
  3. CARBOPLATIN [Concomitant]
     Active Substance: CARBOPLATIN
     Indication: Triple negative breast cancer
     Dosage: UNK?ROUTE OF ADMIN.- INTRAVENOUS (NOT OTHERWISE SPECIFIED)
     Dates: start: 20231009, end: 20231207

REACTIONS (2)
  - Toxic epidermal necrolysis [Recovered/Resolved]
  - Anaemia [Unknown]
